FAERS Safety Report 21240545 (Version 1)
Quarter: 2022Q3

REPORT INFORMATION
  Report Type: Spontaneous
  Country: US (occurrence: US)
  Receive Date: 20220822
  Receipt Date: 20220822
  Transmission Date: 20221027
  Serious: Yes (Other)
  Sender: FDA-Public Use
  Company Number: US-JNJFOC-20220831284

PATIENT
  Age: 5 Decade
  Sex: Female
  Weight: 111.1 kg

DRUGS (2)
  1. OPSUMIT [Suspect]
     Active Substance: MACITENTAN
     Indication: Pulmonary arterial hypertension
     Route: 048
     Dates: end: 202207
  2. TYVASO [Suspect]
     Active Substance: TREPROSTINIL
     Indication: Pulmonary arterial hypertension
     Dosage: TYVASO INHALATION DEVICE (TD-300/A)  60 UG (10 BREATHS), FOUR TIMES A DAY (QID)
     Route: 055
     Dates: start: 20211014

REACTIONS (4)
  - Syncope [Unknown]
  - Feeling hot [Unknown]
  - Hypotension [Unknown]
  - Product dose omission issue [Unknown]
